FAERS Safety Report 8309557-1 (Version None)
Quarter: 2012Q2

REPORT INFORMATION
  Report Type: 
  Country: None (occurrence: None)
  Receive Date: 20120425
  Receipt Date: 20120418
  Transmission Date: 20120825
  Serious: Yes (Other)
  Sender: FDA-Public Use
  Company Number: US-PFIZER INC-2012097617

PATIENT
  Sex: Female

DRUGS (8)
  1. TRAMADOL [Concomitant]
     Dosage: UNK
  2. OXYCODONE [Concomitant]
     Dosage: UNK
  3. LISINOPRIL [Concomitant]
     Dosage: UNK
  4. GABAPENTIN [Suspect]
     Dosage: UNK
  5. METFORMIN [Concomitant]
     Dosage: UNK
  6. BUPROPION [Concomitant]
     Dosage: UNK
  7. AMLODIPINE [Concomitant]
     Dosage: UNK
  8. ASPIRIN [Concomitant]
     Dosage: UNK

REACTIONS (3)
  - PAIN [None]
  - FATIGUE [None]
  - MYALGIA [None]
